FAERS Safety Report 16899841 (Version 1)
Quarter: 2019Q4

REPORT INFORMATION
  Report Type: Spontaneous
  Country: US (occurrence: US)
  Receive Date: 20191008
  Receipt Date: 20191008
  Transmission Date: 20200122
  Serious: Yes (Other)
  Sender: FDA-Public Use
  Company Number: None

PATIENT
  Age: 59 Year
  Sex: Female
  Weight: 110.25 kg

DRUGS (6)
  1. IBRANCE [Suspect]
     Active Substance: PALBOCICLIB
     Indication: BREAST CANCER
     Dosage: 75 MG ORAL 1 C PO QDX21D, 7 OFF
     Route: 048
     Dates: start: 20190722
  2. ZYRTEC [Concomitant]
     Active Substance: CETIRIZINE HYDROCHLORIDE
  3. VITAMIN D [Concomitant]
     Active Substance: VITAMIN D NOS
  4. LISINOPRIL. [Concomitant]
     Active Substance: LISINOPRIL
  5. LETROZOLE. [Concomitant]
     Active Substance: LETROZOLE
  6. FLONASE [Concomitant]
     Active Substance: FLUTICASONE PROPIONATE

REACTIONS (4)
  - Madarosis [None]
  - Diarrhoea [None]
  - Alopecia [None]
  - Fatigue [None]
